FAERS Safety Report 23276812 (Version 1)
Quarter: 2023Q4

REPORT INFORMATION
  Report Type: Spontaneous
  Country: US (occurrence: US)
  Receive Date: 20231208
  Receipt Date: 20231208
  Transmission Date: 20240110
  Serious: Yes (Death, Other)
  Sender: FDA-Public Use
  Company Number: US-BRISTOL-MYERS SQUIBB COMPANY-2023-177937

PATIENT
  Age: 90 Year
  Sex: Male

DRUGS (1)
  1. IDHIFA [Suspect]
     Active Substance: ENASIDENIB MESYLATE
     Indication: Leukaemia
     Dosage: DOSE : TAKE ONE TABLET;     FREQ : ONCE DAILY
     Route: 048

REACTIONS (1)
  - Renal cancer [Fatal]
